FAERS Safety Report 19264053 (Version 1)
Quarter: 2021Q2

REPORT INFORMATION
  Report Type: Spontaneous
  Country: US (occurrence: US)
  Receive Date: 20210517
  Receipt Date: 20210517
  Transmission Date: 20210717
  Serious: Yes (Hospitalization, Other)
  Sender: FDA-Public Use
  Company Number: US-ALKEM LABORATORIES LIMITED-US-ALKEM-2021-02662

PATIENT
  Age: 36 Year
  Sex: Male

DRUGS (1)
  1. TIZANIDINE. [Suspect]
     Active Substance: TIZANIDINE
     Indication: PRODUCT USED FOR UNKNOWN INDICATION
     Dosage: 80 MILLIGRAM
     Route: 065

REACTIONS (10)
  - Electrocardiogram QT prolonged [Recovered/Resolved]
  - Hypomagnesaemia [Recovered/Resolved]
  - Hypokalaemia [Recovered/Resolved]
  - Electrolyte imbalance [Recovered/Resolved]
  - Intentional overdose [Unknown]
  - Acute kidney injury [Recovered/Resolved]
  - Potassium wasting nephropathy [Unknown]
  - Vomiting [Unknown]
  - Depressed level of consciousness [Unknown]
  - Asthenia [Unknown]
